FAERS Safety Report 7291302-2 (Version None)
Quarter: 2011Q1

REPORT INFORMATION
  Report Type: 
  Country: None (occurrence: None)
  Receive Date: 20110214
  Receipt Date: 20110209
  Transmission Date: 20110831
  Serious: Yes (Death, Hospitalization)
  Sender: FDA-Public Use
  Company Number: A0779243A

PATIENT
  Age: 81 Year
  Sex: Male
  Weight: 112.7 kg

DRUGS (7)
  1. AMBIEN [Concomitant]
  2. AMARYL [Concomitant]
  3. CELEBREX [Concomitant]
  4. AVANDIA [Suspect]
     Indication: DIABETES MELLITUS
     Dosage: 8MG PER DAY
     Route: 048
     Dates: start: 19990702, end: 20040901
  5. METFORMIN [Concomitant]
  6. ALTACE [Concomitant]
  7. ALBUTEROL [Concomitant]

REACTIONS (15)
  - CORONARY ARTERY DISEASE [None]
  - MITRAL VALVE INCOMPETENCE [None]
  - CARDIAC FAILURE CONGESTIVE [None]
  - TREATMENT NONCOMPLIANCE [None]
  - UNRESPONSIVE TO STIMULI [None]
  - TACHYCARDIA [None]
  - AORTIC STENOSIS [None]
  - ATRIAL FIBRILLATION [None]
  - CARDIOMEGALY [None]
  - DEATH [None]
  - HYPERTENSION [None]
  - REFUSAL OF TREATMENT BY PATIENT [None]
  - CARDIAC VALVE DISEASE [None]
  - TRICUSPID VALVE INCOMPETENCE [None]
  - ACUTE RESPIRATORY DISTRESS SYNDROME [None]
